FAERS Safety Report 12127393 (Version 1)
Quarter: 2016Q1

REPORT INFORMATION
  Report Type: Spontaneous
  Country: FR (occurrence: FR)
  Receive Date: 20160229
  Receipt Date: 20160229
  Transmission Date: 20160526
  Serious: Yes (Other)
  Sender: FDA-Public Use
  Company Number: FR-SA-2016SA034929

PATIENT
  Age: 64 Year
  Sex: Male

DRUGS (18)
  1. GENTAMICIN. [Suspect]
     Active Substance: GENTAMICIN
     Indication: ENDOCARDITIS
     Route: 042
     Dates: start: 20151206
  2. ZYLORIC [Concomitant]
     Active Substance: ALLOPURINOL
  3. LASILIX [Suspect]
     Active Substance: FUROSEMIDE
     Indication: CARDIAC FAILURE
     Route: 065
     Dates: start: 20151205
  4. GENTAMICIN. [Suspect]
     Active Substance: GENTAMICIN
     Indication: ENDOCARDITIS
     Route: 042
     Dates: start: 20151204, end: 20151204
  5. COVERSYL [Suspect]
     Active Substance: PERINDOPRIL
     Indication: HYPERTENSION
     Route: 048
     Dates: end: 20151205
  6. DIAMICRON [Concomitant]
     Active Substance: GLICLAZIDE
  7. PREVISCAN [Concomitant]
     Active Substance: FLUINDIONE
  8. CRESTOR [Concomitant]
     Active Substance: ROSUVASTATIN CALCIUM
  9. BISOCE [Concomitant]
     Active Substance: BISOPROLOL
  10. LASILIX [Suspect]
     Active Substance: FUROSEMIDE
     Indication: CARDIAC FAILURE
     Route: 065
  11. VALIUM [Concomitant]
     Active Substance: DIAZEPAM
  12. PARACETAMOL [Concomitant]
     Active Substance: ACETAMINOPHEN
  13. SERESTA [Concomitant]
     Active Substance: OXAZEPAM
  14. PANTOPRAZOLE [Concomitant]
     Active Substance: PANTOPRAZOLE SODIUM
  15. JANUMET [Concomitant]
     Active Substance: METFORMIN HYDROCHLORIDE\SITAGLIPTIN PHOSPHATE
  16. LASILIX [Suspect]
     Active Substance: FUROSEMIDE
     Indication: CARDIAC FAILURE
     Route: 065
     Dates: start: 20151203
  17. VISIPAQUE [Suspect]
     Active Substance: IODIXANOL
     Indication: CHEST SCAN
     Dosage: 320 MG
     Route: 042
     Dates: start: 20151204, end: 20151204
  18. DIFFU K [Concomitant]
     Active Substance: POTASSIUM CHLORIDE

REACTIONS (1)
  - Acute kidney injury [Recovering/Resolving]

NARRATIVE: CASE EVENT DATE: 20151205
